FAERS Safety Report 7998901-0 (Version None)
Quarter: 2011Q4

REPORT INFORMATION
  Report Type: 
  Country: None (occurrence: None)
  Receive Date: 20111221
  Receipt Date: 20111209
  Transmission Date: 20120403
  Serious: Yes (Death, Hospitalization)
  Sender: FDA-Public Use
  Company Number: NL-GLAXOSMITHKLINE-B0747393D

PATIENT
  Sex: Male
  Weight: 79.7 kg

DRUGS (5)
  1. HALOPERIDOL [Concomitant]
  2. PAZOPANIB [Suspect]
     Indication: NEOPLASM
     Dosage: 200MG PER DAY
     Route: 048
     Dates: start: 20110823, end: 20111014
  3. ACETAMINOPHEN [Concomitant]
     Dosage: 1000MG FOUR TIMES PER DAY
     Route: 048
  4. IFOSFAMIDE [Suspect]
     Indication: NEOPLASM
     Dosage: 3GM2 CYCLIC
     Route: 042
     Dates: start: 20110830, end: 20111014
  5. METOCLOPRAMIDE [Concomitant]
     Route: 048

REACTIONS (15)
  - MULTI-ORGAN FAILURE [None]
  - RENAL IMPAIRMENT [None]
  - HYPERNATRAEMIA [None]
  - SEPSIS [None]
  - TACHYPNOEA [None]
  - METABOLIC ACIDOSIS [None]
  - CARDIAC ARREST [None]
  - DIABETES INSIPIDUS [None]
  - ENCEPHALOPATHY [None]
  - HYPOTENSION [None]
  - HYPOKALAEMIA [None]
  - HYPOVOLAEMIA [None]
  - NEUTROPENIA [None]
  - HYPOPHOSPHATAEMIA [None]
  - POLYURIA [None]
